FAERS Safety Report 23723879 (Version 1)
Quarter: 2024Q2

REPORT INFORMATION
  Report Type: Spontaneous
  Country: US (occurrence: None)
  Receive Date: 20240408
  Receipt Date: 20240408
  Transmission Date: 20240715
  Serious: Yes (Disabling, Other)
  Sender: FDA-Public Use
  Company Number: None

PATIENT
  Sex: Female

DRUGS (2)
  1. .DELTA.9-TETRAHYDROCANNABINOL\CANNABIDIOL\HERBALS [Suspect]
     Active Substance: .DELTA.9-TETRAHYDROCANNABINOL\CANNABIDIOL\HERBALS
  2. Testosterone, Nasal Spray, [Concomitant]

REACTIONS (3)
  - Hypersensitivity pneumonitis [None]
  - Pulmonary fibrosis [None]
  - Product quality issue [None]

NARRATIVE: CASE EVENT DATE: 20150916
